FAERS Safety Report 23709127 (Version 2)
Quarter: 2025Q1

REPORT INFORMATION
  Report Type: Spontaneous
  Country: US (occurrence: US)
  Receive Date: 20240404
  Receipt Date: 20250204
  Transmission Date: 20250409
  Serious: No
  Sender: MYLAN
  Company Number: US-MYLANLABS-2024M1028455

PATIENT
  Age: 60 Year
  Sex: Female
  Weight: 65.77 kg

DRUGS (4)
  1. TYRVAYA [Suspect]
     Active Substance: VARENICLINE TARTRATE
     Indication: Dry eye
     Route: 065
     Dates: start: 202401
  2. TYRVAYA [Suspect]
     Active Substance: VARENICLINE TARTRATE
     Dosage: 0.03 MILLIGRAM, BID (AT WALL OF NOSE TWICE DAILY)
     Route: 045
     Dates: start: 20231127
  3. MIEBO [Concomitant]
     Active Substance: PERFLUOROHEXYLOCTANE
     Dosage: 1 GTT DROPS, QID (BOTH EYES, 4 TIMES DAILY)
     Route: 047
     Dates: start: 20240105
  4. ALREX [Concomitant]
     Active Substance: LOTEPREDNOL ETABONATE
     Dosage: 1 GTT DROPS, QID (4 TIMES DAILY)
     Route: 047
     Dates: start: 20231215, end: 20240209

REACTIONS (6)
  - Dry mouth [Unknown]
  - Oropharyngeal pain [Unknown]
  - Pharyngeal swelling [Recovered/Resolved]
  - Oropharyngeal discomfort [Recovered/Resolved]
  - Dysphonia [Recovered/Resolved]
  - Throat irritation [Recovered/Resolved]

NARRATIVE: CASE EVENT DATE: 20240301
